FAERS Safety Report 5608748-8 (Version None)
Quarter: 2008Q1

REPORT INFORMATION
  Report Type: 
  Country: None (occurrence: None)
  Receive Date: 20080129
  Receipt Date: 20080129
  Transmission Date: 20080703
  Serious: Yes (Disabling)
  Sender: FDA-Public Use
  Company Number: None

PATIENT
  Age: 61 Year
  Sex: Male
  Weight: 100.6985 kg

DRUGS (1)
  1. EXUBERA [Suspect]
     Indication: TYPE 2 DIABETES MELLITUS
     Dosage: 1 MG BID INHALED
     Route: 055
     Dates: start: 20060801, end: 20070501

REACTIONS (1)
  - INTERSTITIAL LUNG DISEASE [None]
